FAERS Safety Report 6591110-1 (Version None)
Quarter: 2010Q1

REPORT INFORMATION
  Report Type: 
  Country: None (occurrence: None)
  Receive Date: 20100205
  Receipt Date: 20100120
  Transmission Date: 20100710
  Serious: Yes (Other)
  Sender: FDA-Public Use
  Company Number: 1-21365260

PATIENT
  Age: 76 Year
  Sex: Female

DRUGS (6)
  1. WARFARIN SODIUM [Suspect]
  2. DILTIAZEM HCL [Concomitant]
  3. METOPROLOL TARTRATE [Concomitant]
  4. OMEPRAZOLE [Concomitant]
  5. PROPRANOLOL HYDROCHLORIDE [Concomitant]
  6. PENTOXIFYLLINE [Concomitant]

REACTIONS (6)
  - BLOOD CREATININE INCREASED [None]
  - DIALYSIS [None]
  - HAEMATURIA [None]
  - INTERNATIONAL NORMALISED RATIO INCREASED [None]
  - OVERDOSE [None]
  - RENAL INJURY [None]
